FAERS Safety Report 7351938-7 (Version None)
Quarter: 2011Q1

REPORT INFORMATION
  Report Type: 
  Country: None (occurrence: None)
  Receive Date: 20110315
  Receipt Date: 20110301
  Transmission Date: 20110831
  Serious: Yes (Hospitalization)
  Sender: FDA-Public Use
  Company Number: US-JNJFOC-20110301563

PATIENT
  Age: 45 Year
  Sex: Male
  Weight: 86.2 kg

DRUGS (5)
  1. QUETIAPINE [Concomitant]
     Indication: MENTAL DISORDER
  2. PERCOCET [Suspect]
     Indication: FLANK PAIN
  3. METOPROLOL [Concomitant]
     Indication: HYPERTENSION
  4. TYLENOL [Suspect]
     Route: 065
  5. TYLENOL [Suspect]
     Indication: FLANK PAIN
     Route: 065

REACTIONS (5)
  - HEPATIC ENZYME INCREASED [None]
  - MENTAL DISORDER [None]
  - SOMNOLENCE [None]
  - HYPOTENSION [None]
  - TOXICITY TO VARIOUS AGENTS [None]
